FAERS Safety Report 9547384 (Version 1)
Quarter: 2013Q2

REPORT INFORMATION
  Report Type: Spontaneous
  Country: US (occurrence: None)
  Receive Date: 20130606
  Receipt Date: 20130606
  Transmission Date: 20140414
  Serious: Yes (Other)
  Sender: FDA-Public Use
  Company Number: 163-POMAL-13044717

PATIENT
  Age: 45 Year
  Sex: Male

DRUGS (9)
  1. POMALYST [Suspect]
     Indication: PLASMA CELL MYELOMA
     Route: 048
     Dates: start: 20130226
  2. ACYCLOVIR (ACICLOVIR) [Concomitant]
  3. ASPIRIN (ACETYLSALICYLIC) [Concomitant]
  4. DAPSON (DAPSONE) [Concomitant]
  5. DEXAMETHASONE (DEXAMETHASONE) [Concomitant]
  6. GABAPENTIN (GABAPENTIN) [Concomitant]
  7. IBUPROFEN (IBUPROFEN) [Concomitant]
  8. METOPROLOL (TARTRATE (METOPROLOL TARTRATE) [Concomitant]
  9. OMEPRAZOLE (OMEPRAZOLE) [Concomitant]

REACTIONS (1)
  - Plasma cell myeloma [None]
